FAERS Safety Report 4611288-6 (Version None)
Quarter: 2005Q2

REPORT INFORMATION
  Report Type: 
  Country: None (occurrence: None)
  Receive Date: 20050311
  Receipt Date: 20041213
  Transmission Date: 20051028
  Serious: No
  Sender: FDA-Public Use
  Company Number: 2004-BP-13714BP

PATIENT
  Age: 70 Year
  Sex: Female

DRUGS (2)
  1. SPIRIVA [Suspect]
     Dosage: 18 MCG (18 MCG), IH
     Route: 055
     Dates: start: 20041117, end: 20041209
  2. OXYGEN (OXYGEN) [Concomitant]

REACTIONS (4)
  - BLOOD PRESSURE DECREASED [None]
  - ORAL PAIN [None]
  - TOOTH EXTRACTION [None]
  - TOOTHACHE [None]
